FAERS Safety Report 7833057 (Version 9)
Quarter: 2013Q3

REPORT INFORMATION
  Report Type: Spontaneous
  Country: US (occurrence: US)
  Receive Date: 20110228
  Receipt Date: 20130715
  Transmission Date: 20140515
  Serious: Yes (Hospitalization, Other)
  Sender: FDA-Public Use
  Company Number: US-ROCHE-755573

PATIENT
  Age: 34 Year
  Sex: Female
  Weight: 49.9 kg

DRUGS (5)
  1. ACCUTANE [Suspect]
     Indication: ACNE
     Route: 048
     Dates: start: 20000427, end: 20000823
  2. VALTREX [Concomitant]
  3. DIFLUCAN [Concomitant]
  4. RETIN-A [Concomitant]
  5. SKELAXIN [Concomitant]
     Indication: HYPERKERATOSIS

REACTIONS (14)
  - Colitis ulcerative [Unknown]
  - Gastrointestinal haemorrhage [Unknown]
  - Pancreatitis [Unknown]
  - Inflammatory bowel disease [Unknown]
  - Haemorrhoids [Unknown]
  - Multi-organ failure [Unknown]
  - Depression [Unknown]
  - Suicidal ideation [Unknown]
  - Anal fistula [Unknown]
  - Oral herpes [Unknown]
  - Conjunctivitis [Unknown]
  - Pouchitis [Unknown]
  - Hypokalaemia [Unknown]
  - Aphthous stomatitis [Unknown]
